FAERS Safety Report 21227250 (Version 1)
Quarter: 2022Q3

REPORT INFORMATION
  Report Type: Spontaneous
  Country: TR (occurrence: TR)
  Receive Date: 20220818
  Receipt Date: 20220818
  Transmission Date: 20221026
  Serious: Yes (Other)
  Sender: FDA-Public Use
  Company Number: TR-SUN PHARMACEUTICAL INDUSTRIES LTD-2022RR-349327

PATIENT
  Age: 32 Year
  Sex: Male

DRUGS (3)
  1. OLANZAPINE [Suspect]
     Active Substance: OLANZAPINE
     Indication: Schizophrenia
     Dosage: 10 MILLIGRAM, DAILY
     Route: 065
  2. OLANZAPINE [Suspect]
     Active Substance: OLANZAPINE
     Dosage: 30 MILLIGRAM, DAILY
     Route: 065
  3. BIPERIDEN [Suspect]
     Active Substance: BIPERIDEN
     Indication: Schizophrenia
     Dosage: 4 MILLIGRAM, DAILY
     Route: 065

REACTIONS (1)
  - Tardive dyskinesia [Unknown]
